FAERS Safety Report 16368510 (Version 2)
Quarter: 2019Q3

REPORT INFORMATION
  Report Type: Spontaneous
  Country: US (occurrence: US)
  Receive Date: 20190529
  Receipt Date: 20190701
  Transmission Date: 20191004
  Serious: Yes (Other)
  Sender: FDA-Public Use
  Company Number: US-GLAXOSMITHKLINE-US2019094070

PATIENT
  Age: 66 Year
  Sex: Female

DRUGS (1)
  1. VENTOLIN HFA [Suspect]
     Active Substance: ALBUTEROL SULFATE
     Indication: PRODUCT USED FOR UNKNOWN INDICATION
     Dosage: 2 PUFF(S), UNK
     Route: 055
     Dates: start: 1999

REACTIONS (7)
  - Fall [Recovered/Resolved]
  - Product complaint [Unknown]
  - Contusion [Not Recovered/Not Resolved]
  - Flushing [Unknown]
  - Loss of consciousness [Recovered/Resolved]
  - Feeling abnormal [Unknown]
  - Drug intolerance [Unknown]

NARRATIVE: CASE EVENT DATE: 20190523
